FAERS Safety Report 9511824 (Version 1)
Quarter: 2013Q1

REPORT INFORMATION
  Report Type: Spontaneous
  Country: US (occurrence: None)
  Receive Date: 20130305
  Receipt Date: 20130305
  Transmission Date: 20140127
  Serious: Yes (Other)
  Sender: FDA-Public Use
  Company Number: 163-21880-1110688

PATIENT
  Age: 72 Year
  Sex: Female
  Weight: 72.1 kg

DRUGS (12)
  1. REVLIMID [Suspect]
     Indication: PLASMA CELL MYELOMA
     Dosage: 20 MG, 2 IN 1 D, PO
     Route: 048
     Dates: start: 20110715, end: 20110727
  2. CYTOXAN (CYCLOPHOSPHAMIDE) (UNKNOWN) [Concomitant]
  3. DEXAMETHASONE (DEXAMETHASONE) (UNKNOWN) [Concomitant]
  4. VYTORIN (INEGY) (UNKNOWN) [Concomitant]
  5. OMEPRAZOLE (OMEPRAZOLE) (UNKNOWN) [Concomitant]
  6. ASA (ACETYLSALICYLIC ACID) (UNKNOWN) [Concomitant]
  7. COLACE (DOCUSATE SODIUM) (UNKNOWN) [Concomitant]
  8. GABAPENTIN (GABAPENTIN) (TABLETS) [Concomitant]
  9. ACYCLOVIR (ACICLOVIR) (UNKNOWN) [Concomitant]
  10. COUMADIN (WARFARIN SODIUM) (UNKNOWN) [Concomitant]
  11. ZOMETA (ZOLEDRONIC ACID) [Concomitant]
  12. ARANESP (DARBEPOETIN ALFA) [Concomitant]

REACTIONS (5)
  - Pancytopenia [None]
  - Neutrophil count decreased [None]
  - White blood cell count decreased [None]
  - Haemoglobin decreased [None]
  - Platelet count decreased [None]
